FAERS Safety Report 7538271-5 (Version None)
Quarter: 2011Q2

REPORT INFORMATION
  Report Type: 
  Country: None (occurrence: None)
  Receive Date: 20110609
  Receipt Date: 20021113
  Transmission Date: 20111010
  Serious: Yes (Death)
  Sender: FDA-Public Use
  Company Number: PHFR2002GB03625

PATIENT
  Sex: Female

DRUGS (7)
  1. ZOPICLONE [Concomitant]
     Indication: INSOMNIA
     Dosage: 3.75 MG
     Route: 048
  2. SENNA-MINT WAF [Concomitant]
     Indication: CONSTIPATION
     Route: 048
  3. GLYBURIDE [Concomitant]
     Indication: DIABETES MELLITUS
     Dosage: 5 MG, BID
     Route: 048
  4. CLOZAPINE [Suspect]
     Indication: SCHIZOPHRENIA
     Dosage: 750 MG/DAY
     Route: 048
     Dates: start: 19910716
  5. FYBOGEL [Concomitant]
     Indication: CONSTIPATION
     Route: 048
  6. PREDNISOLONE [Concomitant]
     Indication: ASTHMA
     Dosage: 5 MG, QD
     Route: 048
  7. FLUVASTATIN [Concomitant]
     Indication: HYPERLIPIDAEMIA
     Dosage: 20 MG, QD
     Route: 048

REACTIONS (1)
  - PNEUMONIA [None]
